FAERS Safety Report 8523599-2 (Version None)
Quarter: 2012Q3

REPORT INFORMATION
  Report Type: 
  Country: None (occurrence: None)
  Receive Date: 20120709
  Receipt Date: 20110625
  Transmission Date: 20120928
  Serious: Yes (Other)
  Sender: FDA-Public Use
  Company Number: 2011AP001343

PATIENT

DRUGS (4)
  1. SIMVASTATIN [Suspect]
     Indication: TYPE IIA HYPERLIPIDAEMIA
     Dosage: 80 MG; QD
  2. ACETAMINOPHEN [Concomitant]
  3. DILTIAZEM [Suspect]
     Indication: HYPERTENSION
     Dosage: 90 MG; BID
  4. ENALAPRIL MALEATE [Concomitant]

REACTIONS (5)
  - RESPIRATORY DISORDER [None]
  - DRUG INTERACTION [None]
  - MYOPATHY [None]
  - BLOOD CREATINE PHOSPHOKINASE INCREASED [None]
  - ALANINE AMINOTRANSFERASE INCREASED [None]
